FAERS Safety Report 8443408 (Version 2)
Quarter: 2013Q4

REPORT INFORMATION
  Report Type: Spontaneous
  Country: US (occurrence: US)
  Receive Date: 20120306
  Receipt Date: 20131205
  Transmission Date: 20140711
  Serious: Yes (Death, Hospitalization)
  Sender: FDA-Public Use
  Company Number: US-GLAXOSMITHKLINE-B0706690A

PATIENT
  Age: 64 Year
  Sex: Male

DRUGS (1)
  1. AVANDIA [Suspect]
     Indication: DIABETES MELLITUS
     Dosage: 4MG PER DAY
     Route: 048
     Dates: start: 200602, end: 20070517

REACTIONS (5)
  - Ventricular arrhythmia [Fatal]
  - Ischaemic cardiomyopathy [Fatal]
  - Hypoxic-ischaemic encephalopathy [Fatal]
  - Pneumonia [Fatal]
  - Cardiovascular disorder [Unknown]
